FAERS Safety Report 24017922 (Version 3)
Quarter: 2024Q3

REPORT INFORMATION
  Report Type: Spontaneous
  Country: US (occurrence: None)
  Receive Date: 20240627
  Receipt Date: 20240903
  Transmission Date: 20241016
  Serious: No
  Sender: ASTRAZENECA
  Company Number: 2024A144940

PATIENT
  Sex: Male

DRUGS (2)
  1. SEROQUEL [Suspect]
     Active Substance: QUETIAPINE FUMARATE
     Indication: Bipolar disorder
     Route: 048
  2. QUETIAPINE [Suspect]
     Active Substance: QUETIAPINE
     Route: 048

REACTIONS (4)
  - Insomnia [Unknown]
  - Drug ineffective [Unknown]
  - Feeling abnormal [Unknown]
  - Tinnitus [Unknown]
